FAERS Safety Report 6634122-1 (Version None)
Quarter: 2010Q1

REPORT INFORMATION
  Report Type: 
  Country: None (occurrence: None)
  Receive Date: 20100315
  Receipt Date: 20100305
  Transmission Date: 20100710
  Serious: Yes (Hospitalization)
  Sender: FDA-Public Use
  Company Number: FR-JNJFOC-20100302579

PATIENT

DRUGS (7)
  1. GALANTAMINE HYDROBROMIDE [Suspect]
     Indication: DRUG USE FOR UNKNOWN INDICATION
     Route: 048
  2. GALANTAMINE HYDROBROMIDE [Suspect]
     Route: 048
  3. HYDROXYZINE [Concomitant]
     Route: 048
  4. THEOPHYLLINE [Concomitant]
     Route: 065
  5. CLOBAZAM [Concomitant]
     Route: 048
  6. SERETIDE [Concomitant]
     Route: 065
  7. SALBUTAMOL [Concomitant]
     Route: 065

REACTIONS (9)
  - ACCIDENT [None]
  - DECREASED APPETITE [None]
  - DRUG ABUSE [None]
  - DRUG DEPENDENCE [None]
  - FALL [None]
  - GENERAL PHYSICAL HEALTH DETERIORATION [None]
  - INJURY [None]
  - OVERDOSE [None]
  - WITHDRAWAL SYNDROME [None]
